FAERS Safety Report 13192602 (Version 1)
Quarter: 2017Q1

REPORT INFORMATION
  Report Type: Spontaneous
  Country: NL (occurrence: NL)
  Receive Date: 20170207
  Receipt Date: 20170207
  Transmission Date: 20170428
  Serious: Yes (Other)
  Sender: FDA-Public Use
  Company Number: NL-AMGEN-NLDSP2017017208

PATIENT
  Age: 81 Year
  Sex: Male
  Weight: 100 kg

DRUGS (14)
  1. PARACETAMOL [Concomitant]
     Active Substance: ACETAMINOPHEN
     Dosage: 500 MG, UNK
  2. CLOBETASOL [Concomitant]
     Active Substance: CLOBETASOL
     Dosage: 1 DF, QD
  3. HYDROCORTISONE. [Concomitant]
     Active Substance: HYDROCORTISONE
     Dosage: 1 DF, BID
  4. MICONAZOLE. [Concomitant]
     Active Substance: MICONAZOLE
     Dosage: 20 MG/G, BID
  5. GLYCERYL TRINITRATE [Concomitant]
     Active Substance: NITROGLYCERIN
     Indication: BREAST PAIN
     Dosage: 4 MG, AS NECESSARY
  6. INSULIN ASPART [Concomitant]
     Active Substance: INSULIN ASPART
     Dosage: UNK UNK, AS NECESSARY
  7. MACROGOL + ELECTROLYTES SANDOZ [Concomitant]
     Dosage: UNK UNK, AS NECESSARY
  8. FLUTICASONE. [Concomitant]
     Active Substance: FLUTICASONE
     Dosage: 0.5 MG/G, QD
  9. LEVOCETIRIZINE [Concomitant]
     Active Substance: LEVOCETIRIZINE
     Dosage: 5 MG, BID
  10. FUSIDIC ACID [Concomitant]
     Active Substance: FUSIDIC ACID
     Dosage: 20 MG/G, QD
  11. VASELINE PURE [Concomitant]
     Active Substance: PETROLATUM
     Dosage: UNK UNK, AS NECESSARY
  12. CLINDAMYCIN. [Concomitant]
     Active Substance: CLINDAMYCIN
     Dosage: 150 MG, QD
  13. PROLIA [Suspect]
     Active Substance: DENOSUMAB
     Indication: OSTEOPOROSIS
     Dosage: 60 MG/ML, Q6MO
     Route: 065
     Dates: start: 2013, end: 2016
  14. MYCOPHENOLIC ACID. [Concomitant]
     Active Substance: MYCOPHENOLIC ACID
     Dosage: 250 MG, BID

REACTIONS (1)
  - Stress fracture [Recovering/Resolving]

NARRATIVE: CASE EVENT DATE: 20161210
